FAERS Safety Report 6337572-6 (Version None)
Quarter: 2009Q3

REPORT INFORMATION
  Report Type: 
  Country: None (occurrence: None)
  Receive Date: 20090902
  Receipt Date: 20090820
  Transmission Date: 20100115
  Serious: Yes (Disabling, Other)
  Sender: FDA-Public Use
  Company Number: US-ELI_LILLY_AND_COMPANY-US200908004457

PATIENT
  Sex: Male

DRUGS (1)
  1. ZYPREXA [Suspect]
     Dosage: UNK, UNK
     Dates: start: 20030101, end: 20070101

REACTIONS (4)
  - BRAIN INJURY [None]
  - MENTAL DISABILITY [None]
  - OVERDOSE [None]
  - SELF ESTEEM DECREASED [None]
